FAERS Safety Report 4765575-1 (Version None)
Quarter: 2005Q3

REPORT INFORMATION
  Report Type: 
  Country: None (occurrence: None)
  Receive Date: 20050906
  Receipt Date: 20050824
  Transmission Date: 20060218
  Serious: Yes (Other)
  Sender: FDA-Public Use
  Company Number: 2005120501

PATIENT
  Age: 56 Year
  Sex: Female
  Weight: 76 kg

DRUGS (12)
  1. LYRICA [Suspect]
     Indication: NEURALGIA
     Dosage: 300 MG (100 MG, 3 IN 1 D), ORAL
     Route: 048
     Dates: start: 20050531
  2. TEMAZEPAM [Concomitant]
  3. KAPAKE (CODEINE PHOSPHATE, PARACETAMOL [Concomitant]
  4. LANSOPRAZOLE [Concomitant]
  5. ATORVASTATIN CALCIUM [Concomitant]
  6. METOCLOPRAMIDE [Concomitant]
  7. CLOPIDOGREL BISULFATE [Concomitant]
  8. BETAHISTINE DIHYDROCHLORIDE (BETAHISTINE HYDROCHLORIDE) [Concomitant]
  9. FERROUS SULPHATE (FERROUS SULPHATE) [Concomitant]
  10. FLUOXETINE [Concomitant]
  11. EXETIMIBE (EZETIMIBE) [Concomitant]
  12. LACTULOSE [Concomitant]

REACTIONS (1)
  - BREAST CANCER FEMALE [None]
